FAERS Safety Report 23276405 (Version 2)
Quarter: 2023Q4

REPORT INFORMATION
  Report Type: Spontaneous
  Country: JP (occurrence: JP)
  Receive Date: 20231208
  Receipt Date: 20231228
  Transmission Date: 20240109
  Serious: Yes (Other)
  Sender: FDA-Public Use
  Company Number: JP-PFIZER INC-PV202300193958

PATIENT
  Age: 55 Year
  Sex: Male

DRUGS (1)
  1. HYDROCORTISONE [Suspect]
     Active Substance: HYDROCORTISONE
     Dosage: 60 MG, DAILY, HIGHDOSE

REACTIONS (3)
  - Steroid diabetes [Unknown]
  - Dacryocanaliculitis [Recovered/Resolved]
  - Aspergillus infection [Recovered/Resolved]
